FAERS Safety Report 9340762 (Version 2)
Quarter: 2013Q3

REPORT INFORMATION
  Report Type: Report from Study
  Country: US (occurrence: US)
  Receive Date: 20130610
  Receipt Date: 20130719
  Transmission Date: 20140515
  Serious: Yes (Other)
  Sender: FDA-Public Use
  Company Number: US-ABBOTT-13P-163-1091547-00

PATIENT
  Age: 41 Year
  Sex: Female
  Weight: 72.64 kg

DRUGS (11)
  1. HUMIRA [Suspect]
     Indication: CROHN^S DISEASE
     Dates: start: 20130307
  2. LISINOPRIL [Concomitant]
     Indication: BLOOD PRESSURE
     Dosage: 10 MG DAILY
  3. BENTYL [Concomitant]
     Indication: ABDOMINAL PAIN
     Dosage: AS NEEDED
  4. ALPRAZOLAM [Concomitant]
     Indication: ANXIETY
  5. PHENERGAN [Concomitant]
     Indication: NAUSEA
  6. METFORMIN [Concomitant]
     Indication: DIABETES MELLITUS
     Dates: end: 201306
  7. PAXIL [Concomitant]
     Indication: DEPRESSION
  8. NEXIUM [Concomitant]
     Indication: GASTROOESOPHAGEAL REFLUX DISEASE
  9. EXCEDRIN MIGRAINE [Concomitant]
     Indication: MIGRAINE
  10. PREDNISONE [Concomitant]
     Indication: PRODUCT USED FOR UNKNOWN INDICATION
     Dates: end: 201306
  11. PREDNISONE [Concomitant]
     Dosage: TAPERING DOWN
     Dates: start: 201306

REACTIONS (18)
  - Blood glucose increased [Recovering/Resolving]
  - Asthenia [Not Recovered/Not Resolved]
  - Diarrhoea [Recovering/Resolving]
  - Night sweats [Not Recovered/Not Resolved]
  - Fistula [Not Recovered/Not Resolved]
  - Vomiting [Recovering/Resolving]
  - Asthenia [Not Recovered/Not Resolved]
  - Migraine [Unknown]
  - Blood parathyroid hormone increased [Unknown]
  - Blood potassium decreased [Unknown]
  - Blood sodium decreased [Unknown]
  - Infection [Unknown]
  - Dehydration [Recovering/Resolving]
  - Nausea [Unknown]
  - Cough [Not Recovered/Not Resolved]
  - Sinus headache [Not Recovered/Not Resolved]
  - Abdominal pain [Not Recovered/Not Resolved]
  - Nausea [Not Recovered/Not Resolved]
